FAERS Safety Report 24182764 (Version 2)
Quarter: 2024Q3

REPORT INFORMATION
  Report Type: Spontaneous
  Country: JP (occurrence: JP)
  Receive Date: 20240807
  Receipt Date: 20240924
  Transmission Date: 20241017
  Serious: Yes (Other)
  Sender: ASTELLAS
  Company Number: JP-ASTELLAS-2024JP005432

PATIENT
  Age: 61 Year
  Sex: Male

DRUGS (3)
  1. PADCEV [Suspect]
     Active Substance: ENFORTUMAB VEDOTIN-EJFV
     Indication: Transitional cell carcinoma
     Dosage: UNK UNK, UNKNOWN FREQUENCY
     Route: 042
     Dates: start: 20240301
  2. PADCEV [Suspect]
     Active Substance: ENFORTUMAB VEDOTIN-EJFV
     Dosage: ONE STEP DOSE REDUCTION, UNKNOWN FREQUENCY
     Route: 042
     Dates: start: 202404, end: 20240606
  3. PADCEV [Suspect]
     Active Substance: ENFORTUMAB VEDOTIN-EJFV
     Dosage: 1.25 MG/KG, UNKNOWN FREQUENCY
     Route: 042
     Dates: start: 20240613

REACTIONS (3)
  - Metastases to lymph nodes [Recovering/Resolving]
  - Condition aggravated [Recovering/Resolving]
  - Ageusia [Recovered/Resolved]

NARRATIVE: CASE EVENT DATE: 20240401
